FAERS Safety Report 13212424 (Version 2)
Quarter: 2017Q1

REPORT INFORMATION
  Report Type: Spontaneous
  Country: CH (occurrence: CH)
  Receive Date: 20170210
  Receipt Date: 20170223
  Transmission Date: 20170428
  Serious: Yes (Death, Life-Threatening, Hospitalization)
  Sender: FDA-Public Use
  Company Number: CH-PFIZER INC-2017058193

PATIENT
  Age: 32 Year
  Sex: Female

DRUGS (7)
  1. APYDAN /00596701/ [Suspect]
     Active Substance: OXCARBAZEPINE
     Indication: SEIZURE
     Dosage: 450 MG, DAILY (300MG 1/2-0-1 )
     Route: 048
     Dates: start: 201701, end: 20170125
  2. FRAGMIN [Suspect]
     Active Substance: DALTEPARIN SODIUM
     Indication: THROMBOSIS PROPHYLAXIS
     Dosage: 5000 IU, 1X/DAY
     Route: 058
     Dates: start: 20170125, end: 20170127
  3. OPDIVO [Suspect]
     Active Substance: NIVOLUMAB
     Indication: NEUROENDOCRINE CARCINOMA METASTATIC
     Dosage: 219 MG, 3 MG/KG (219MG) EVERY 2 WEEKS
     Route: 041
     Dates: start: 20161208, end: 20170102
  4. APYDAN /00596701/ [Suspect]
     Active Substance: OXCARBAZEPINE
     Indication: METASTASES TO CENTRAL NERVOUS SYSTEM
  5. FORTECORTIN /00016001/ [Concomitant]
     Active Substance: DEXAMETHASONE
     Indication: METASTASES TO CENTRAL NERVOUS SYSTEM
     Dosage: 8 MG, 1X/DAY 1-0-0
     Dates: start: 2016
  6. DAFALGAN [Suspect]
     Active Substance: ACETAMINOPHEN
     Indication: HEADACHE
     Dosage: UNK
     Route: 048
     Dates: start: 20170125, end: 20170125
  7. IRFEN [Suspect]
     Active Substance: IBUPROFEN
     Indication: HEADACHE
     Dosage: 1 DF, UNK
     Route: 048
     Dates: start: 20170125, end: 20170125

REACTIONS (8)
  - Autoimmune hepatitis [Fatal]
  - Circulatory collapse [Unknown]
  - Abdominal pain [Unknown]
  - Rash macular [Unknown]
  - Ventricular fibrillation [Unknown]
  - Vomiting [Unknown]
  - Post procedural haemorrhage [Unknown]
  - Shock haemorrhagic [Unknown]

NARRATIVE: CASE EVENT DATE: 20170124
